FAERS Safety Report 10328211 (Version 1)
Quarter: 2014Q3

REPORT INFORMATION
  Report Type: Report from Study
  Country: CZ (occurrence: CZ)
  Receive Date: 20140721
  Receipt Date: 20140721
  Transmission Date: 20150326
  Serious: Yes (Other)
  Sender: FDA-Public Use
  Company Number: CZ-JNJFOC-20140710186

PATIENT
  Age: 67 Year
  Sex: Male

DRUGS (1)
  1. SIMPONI [Suspect]
     Active Substance: GOLIMUMAB
     Indication: ANKYLOSING SPONDYLITIS
     Route: 058
     Dates: start: 201107, end: 2014

REACTIONS (1)
  - Non-small cell lung cancer metastatic [Not Recovered/Not Resolved]

NARRATIVE: CASE EVENT DATE: 20140612
